FAERS Safety Report 9061309 (Version 1)
Quarter: 2013Q1

REPORT INFORMATION
  Report Type: Spontaneous
  Country: US (occurrence: None)
  Receive Date: 20130208
  Receipt Date: 20130208
  Transmission Date: 20140127
  Serious: No
  Sender: FDA-Public Use
  Company Number: None

PATIENT
  Age: 36 Year
  Sex: Female
  Weight: 90.7 kg

DRUGS (40)
  1. CRESTOR [Suspect]
     Indication: ACUTE RESPIRATORY DISTRESS SYNDROME
     Dosage: 40MG PO/PG (SINGLE DOSE)
     Route: 048
     Dates: start: 20121123
  2. CRESTOR [Suspect]
     Indication: SEPSIS
     Dosage: 40MG PO/PG (SINGLE DOSE)
     Route: 048
     Dates: start: 20121123
  3. AZITHROMYCIN [Concomitant]
  4. AZTREONAM [Concomitant]
  5. LEVOFLOXACIN [Concomitant]
  6. MEROPENEM [Concomitant]
  7. TMP/SMX [Concomitant]
  8. VANCOMYCIN [Concomitant]
  9. ACETAMINOPHEN [Concomitant]
  10. ALBUTEROL + IPRATROPIUM [Concomitant]
  11. ALBUTEROL HFA INHALER [Concomitant]
  12. AMITRIPTYLINE [Concomitant]
  13. BENZONATATE [Concomitant]
  14. CALCIUM GLUCONATE [Concomitant]
  15. DULOXETINE [Concomitant]
  16. ENOXAPARIN [Concomitant]
  17. ETHACRYNATE [Concomitant]
  18. FENTANYL [Concomitant]
  19. FLOCONAZOLE [Concomitant]
  20. FLUTICASONE-SALMETEROL [Concomitant]
  21. FUROSEMIDE [Concomitant]
  22. GABAPENTIN [Concomitant]
  23. HEPARIN [Concomitant]
  24. HYDROMORPHONE [Concomitant]
  25. HYDROXYCHLOROQUINE [Concomitant]
  26. INSULIN ASPART [Concomitant]
  27. IPRATROPIUM BROMIDE [Concomitant]
  28. IRON SUCROSE [Concomitant]
  29. ITRACONAZOLE [Concomitant]
  30. POTASSIUM CHLORIDE [Concomitant]
  31. LAMOTRIGINE [Concomitant]
  32. LIDOCAINE [Concomitant]
  33. LORAZEPAM [Concomitant]
  34. MAGNESIUM SULFATE [Concomitant]
  35. METHYPREDNISOLONE [Concomitant]
  36. NIFEDIPINE [Concomitant]
  37. OLANZAPINE [Concomitant]
  38. OMEPRAZOLE [Concomitant]
  39. ONDANSETRON [Concomitant]
  40. PROPOFOL [Concomitant]

REACTIONS (2)
  - Hyperpyrexia [None]
  - Blood creatine phosphokinase increased [None]
